FAERS Safety Report 10110997 (Version 1)
Quarter: 2014Q2

REPORT INFORMATION
  Report Type: Spontaneous
  Country: US (occurrence: None)
  Receive Date: 20140424
  Receipt Date: 20140424
  Transmission Date: 20141212
  Serious: Yes (Other)
  Sender: FDA-Public Use
  Company Number: None

PATIENT
  Age: 50 Year
  Sex: Male
  Weight: 78.47 kg

DRUGS (2)
  1. VESICARE [Suspect]
     Indication: POLLAKIURIA
     Dosage: 1 PILL ONCE DAILY TAKEN BY MOUTH
     Route: 048
     Dates: start: 20140413, end: 20140415
  2. VESICARE [Suspect]
     Indication: PROSTATOMEGALY
     Dosage: 1 PILL ONCE DAILY TAKEN BY MOUTH
     Route: 048
     Dates: start: 20140413, end: 20140415

REACTIONS (8)
  - Eye disorder [None]
  - Eye pain [None]
  - Glaucomatous optic disc atrophy [None]
  - Constipation [None]
  - Hypohidrosis [None]
  - Asthenia [None]
  - Dry mouth [None]
  - Erectile dysfunction [None]
